FAERS Safety Report 17005987 (Version 1)
Quarter: 2019Q4

REPORT INFORMATION
  Report Type: Spontaneous
  Country: GB (occurrence: GB)
  Receive Date: 20191107
  Receipt Date: 20191107
  Transmission Date: 20200122
  Serious: Yes (Hospitalization, Other)
  Sender: FDA-Public Use
  Company Number: GB-MYLANLABS-2019M1106231

PATIENT
  Sex: Male

DRUGS (1)
  1. ACAMPROSATE 333 MG GASTRO-RESISTANT TABLETS [Suspect]
     Active Substance: ACAMPROSATE
     Indication: PRODUCT USED FOR UNKNOWN INDICATION
     Dosage: UNK

REACTIONS (4)
  - Seizure [Unknown]
  - Tongue biting [Unknown]
  - Feeding disorder [Unknown]
  - Hypoglycaemia [Unknown]
